FAERS Safety Report 18563255 (Version 1)
Quarter: 2020Q4

REPORT INFORMATION
  Report Type: Spontaneous
  Country: US (occurrence: US)
  Receive Date: 20201201
  Receipt Date: 20201201
  Transmission Date: 20210114
  Serious: Yes (Other)
  Sender: FDA-Public Use
  Company Number: US-HIKMA PHARMACEUTICALS USA INC.-US-H14001-20-05375

PATIENT
  Age: 69 Year
  Sex: Female

DRUGS (5)
  1. FOLINIC ACID [Concomitant]
     Active Substance: LEUCOVORIN
     Indication: METASTATIC NEOPLASM
     Dosage: UNKNOWN
     Route: 065
     Dates: start: 2019
  2. MITOMYCIN. [Suspect]
     Active Substance: MITOMYCIN
     Indication: METASTATIC NEOPLASM
     Dosage: UNKNOWN
     Route: 033
  3. IRINOTECAN [Concomitant]
     Active Substance: IRINOTECAN
     Indication: METASTATIC NEOPLASM
     Dosage: UNKNOWN
     Route: 065
     Dates: start: 2019
  4. 5-FLUOROURACIL [Concomitant]
     Active Substance: FLUOROURACIL
     Indication: METASTATIC NEOPLASM
     Dosage: UNKNOWN
     Route: 065
     Dates: start: 2019
  5. CETUXIMAB. [Concomitant]
     Active Substance: CETUXIMAB
     Indication: METASTATIC NEOPLASM
     Dosage: UNKNOWN
     Route: 065
     Dates: start: 2019

REACTIONS (3)
  - Tetany [Recovered/Resolved]
  - Hypocalcaemia [Recovered/Resolved]
  - Hypoparathyroidism [Recovered/Resolved]
